FAERS Safety Report 6842346-3 (Version None)
Quarter: 2010Q3

REPORT INFORMATION
  Report Type: 
  Country: None (occurrence: None)
  Receive Date: 20100709
  Receipt Date: 20100628
  Transmission Date: 20110219
  Serious: Yes (Other)
  Sender: FDA-Public Use
  Company Number: 013221

PATIENT
  Sex: Female
  Weight: 77 kg

DRUGS (6)
  1. CIMZIA [Suspect]
     Indication: RHEUMATOID ARTHRITIS
     Dosage: 200 MG 1X/2WEEKS SUBCUTANEOUS
     Route: 058
     Dates: start: 20100223
  2. PLAQUENIL [Concomitant]
  3. INDOMETHACIN [Concomitant]
  4. PREDNISONE [Concomitant]
  5. COZAAR [Concomitant]
  6. HYDRA-ZIDE [Concomitant]

REACTIONS (6)
  - ANXIETY [None]
  - ARTHRITIS [None]
  - CELLULITIS [None]
  - CONDITION AGGRAVATED [None]
  - SKIN INFECTION [None]
  - WOUND HAEMORRHAGE [None]
